FAERS Safety Report 15505547 (Version 2)
Quarter: 2019Q4

REPORT INFORMATION
  Report Type: Report from Study
  Country: US (occurrence: US)
  Receive Date: 20181016
  Receipt Date: 20191010
  Transmission Date: 20200122
  Serious: Yes (Other)
  Sender: FDA-Public Use
  Company Number: US-ROCHE-2198807

PATIENT
  Age: 52 Year
  Sex: Female
  Weight: 52.66 kg

DRUGS (4)
  1. OCREVUS [Suspect]
     Active Substance: OCRELIZUMAB
     Route: 065
     Dates: start: 20181023
  2. OCREVUS [Suspect]
     Active Substance: OCRELIZUMAB
     Dosage: 2ND OCREVUS HALF DOSE ;ONGOING: NO
     Route: 065
     Dates: start: 20180213, end: 20180213
  3. OCREVUS [Suspect]
     Active Substance: OCRELIZUMAB
     Route: 065
     Dates: start: 20190409
  4. OCREVUS [Suspect]
     Active Substance: OCRELIZUMAB
     Indication: RELAPSING-REMITTING MULTIPLE SCLEROSIS
     Dosage: 1ST HALF OCREVUS DOSE ;ONGOING: NO
     Route: 065
     Dates: start: 20180129, end: 20180129

REACTIONS (6)
  - Aphonia [Recovered/Resolved]
  - Throat irritation [Not Recovered/Not Resolved]
  - Ear pain [Recovered/Resolved]
  - Productive cough [Recovered/Resolved]
  - Sinusitis [Recovered/Resolved]
  - Bronchitis [Recovered/Resolved]

NARRATIVE: CASE EVENT DATE: 201808
